FAERS Safety Report 14830794 (Version 1)
Quarter: 2018Q2

REPORT INFORMATION
  Report Type: Spontaneous
  Country: US (occurrence: US)
  Receive Date: 20180430
  Receipt Date: 20180430
  Transmission Date: 20180711
  Serious: Yes (Other)
  Sender: FDA-Public Use
  Company Number: US-BAUSCH-BL-2017-028285

PATIENT
  Age: 56 Year
  Sex: Female
  Weight: 54.48 kg

DRUGS (7)
  1. ALREX [Suspect]
     Active Substance: LOTEPREDNOL ETABONATE
     Route: 031
     Dates: start: 201706, end: 2017
  2. ALREX [Suspect]
     Active Substance: LOTEPREDNOL ETABONATE
     Route: 031
     Dates: start: 2017, end: 2017
  3. ALREX [Suspect]
     Active Substance: LOTEPREDNOL ETABONATE
     Indication: DRY EYE
     Route: 031
     Dates: start: 2007
  4. ALREX [Suspect]
     Active Substance: LOTEPREDNOL ETABONATE
     Route: 031
     Dates: start: 2015
  5. ALREX [Suspect]
     Active Substance: LOTEPREDNOL ETABONATE
     Dosage: FOR FEW DAYS
     Route: 031
     Dates: start: 2017, end: 2017
  6. ALREX [Suspect]
     Active Substance: LOTEPREDNOL ETABONATE
     Route: 031
     Dates: start: 2017, end: 2017
  7. ALREX [Suspect]
     Active Substance: LOTEPREDNOL ETABONATE
     Route: 031
     Dates: start: 2017, end: 2017

REACTIONS (4)
  - Disease recurrence [Recovered/Resolved]
  - Dry eye [Recovered/Resolved]
  - Off label use [Recovered/Resolved]
  - Keratitis [Recovering/Resolving]

NARRATIVE: CASE EVENT DATE: 2007
